FAERS Safety Report 5165929-8 (Version None)
Quarter: 2006Q4

REPORT INFORMATION
  Report Type: 
  Country: None (occurrence: None)
  Receive Date: 20061206
  Receipt Date: 20061129
  Transmission Date: 20070319
  Serious: Yes (Hospitalization)
  Sender: FDA-Public Use
  Company Number: IT-BOEHRINGER INGELHEIM PHARMACEUTICALS, INC.-2006-IT-00269IT

PATIENT
  Sex: Male

DRUGS (1)
  1. MELOXICAM [Suspect]

REACTIONS (6)
  - HYPERHIDROSIS [None]
  - HYPOTHERMIA [None]
  - MIXED INCONTINENCE [None]
  - PALLOR [None]
  - SKIN REACTION [None]
  - SYNCOPE [None]
